FAERS Safety Report 4616332-8 (Version None)
Quarter: 2005Q1

REPORT INFORMATION
  Report Type: 
  Country: None (occurrence: None)
  Receive Date: 20050321
  Receipt Date: 20050309
  Transmission Date: 20050727
  Serious: Yes (Other)
  Sender: FDA-Public Use
  Company Number: HQWYE588425AUG04

PATIENT
  Age: 51 Year
  Sex: Female
  Weight: 108.96 kg

DRUGS (2)
  1. PREMPRO [Suspect]
     Dosage: ORAL
     Route: 048
     Dates: start: 20000501, end: 20010301
  2. PREMARIN [Suspect]
     Dosage: ORAL
     Route: 048
     Dates: start: 20010101, end: 20010301

REACTIONS (5)
  - ARTERIAL THROMBOSIS LIMB [None]
  - CEREBROVASCULAR ACCIDENT [None]
  - HYPOAESTHESIA [None]
  - LEG AMPUTATION [None]
  - PHANTOM PAIN [None]
